FAERS Safety Report 8018819-7 (Version None)
Quarter: 2012Q1

REPORT INFORMATION
  Report Type: 
  Country: None (occurrence: None)
  Receive Date: 20120103
  Receipt Date: 20111221
  Transmission Date: 20120608
  Serious: Yes (Hospitalization)
  Sender: FDA-Public Use
  Company Number: FR-PFIZER INC-2011314843

PATIENT
  Age: 89 Year
  Sex: Female

DRUGS (12)
  1. MOLSIDOMINE [Concomitant]
     Dosage: UNK
  2. FEBUXOSTAT [Concomitant]
     Dosage: UNK
  3. ALENDRONATE SODIUM [Concomitant]
     Dosage: UNK
  4. MEDIATENSYL [Concomitant]
     Dosage: UNK
  5. ATORVASTATIN [Concomitant]
     Dosage: UNK
  6. TRIMEBUTINE [Concomitant]
     Dosage: UNK
  7. MIZOLLEN [Concomitant]
     Dosage: UNK
  8. CORDARONE [Suspect]
     Indication: ATRIAL FIBRILLATION
     Dosage: 200 MG, 1X/DAY
     Route: 048
     Dates: start: 20110915
  9. PREVISCAN [Concomitant]
     Dosage: UNK
  10. HYDROCHLOROTHIAZIDE/OLMESARTAN MEDOXOMIL [Concomitant]
     Dosage: UNK
  11. CERVOXAN [Concomitant]
     Dosage: UNK
  12. PANTOPRAZOLE SODIUM [Concomitant]
     Dosage: UNK

REACTIONS (2)
  - BLOOD THYROID STIMULATING HORMONE INCREASED [None]
  - PRESYNCOPE [None]
